FAERS Safety Report 23672908 (Version 1)
Quarter: 2024Q1

REPORT INFORMATION
  Report Type: Spontaneous
  Country: HR (occurrence: HR)
  Receive Date: 20240326
  Receipt Date: 20240326
  Transmission Date: 20240409
  Serious: Yes (Other)
  Sender: FDA-Public Use
  Company Number: HR-BIOVITRUM-2024-HR-004666

PATIENT
  Age: 6 Year
  Sex: Female

DRUGS (1)
  1. ANAKINRA [Suspect]
     Active Substance: ANAKINRA
     Indication: Still^s disease
     Dosage: 100MG, ONCE DAILY
     Route: 058

REACTIONS (1)
  - Haemophagocytic lymphohistiocytosis [Unknown]
